FAERS Safety Report 9237456 (Version 2)
Quarter: 2013Q2

REPORT INFORMATION
  Report Type: Spontaneous
  Country: US (occurrence: US)
  Receive Date: 20130417
  Receipt Date: 20130430
  Transmission Date: 20140414
  Serious: Yes (Hospitalization)
  Sender: FDA-Public Use
  Company Number: US-PFIZER INC-2013115087

PATIENT
  Age: 76 Year
  Sex: Female
  Weight: 79.4 kg

DRUGS (4)
  1. PREMARIN [Suspect]
     Indication: HORMONE REPLACEMENT THERAPY
     Dosage: 0.625 MG, 1X/DAY
  2. NITROSTAT [Suspect]
     Indication: CARDIAC DISORDER
     Dosage: 0.4 MG, AS NEEDED
  3. CALAN SR [Suspect]
     Indication: CARDIAC DISORDER
     Dosage: 240 MG, 1X/DAY
  4. CIMETIDINE [Concomitant]
     Indication: ULCER
     Dosage: 400 MG, 1X/DAY

REACTIONS (6)
  - Nervous system disorder [Unknown]
  - Cardiac disorder [Unknown]
  - Bladder disorder [Unknown]
  - Asthma [Unknown]
  - Pain [Unknown]
  - Malaise [Unknown]
